FAERS Safety Report 6572068-8 (Version None)
Quarter: 2010Q1

REPORT INFORMATION
  Report Type: 
  Country: None (occurrence: None)
  Receive Date: 20100201
  Receipt Date: 20100126
  Transmission Date: 20100710
  Serious: Yes (Life-Threatening, Hospitalization)
  Sender: FDA-Public Use
  Company Number: 2010SP000267

PATIENT
  Age: 44 Year
  Sex: Female
  Weight: 154.5 kg

DRUGS (9)
  1. CICLESONIDE HFA NASAL AEROSOL [Suspect]
     Indication: RHINITIS PERENNIAL
     Dosage: 160 UG;QD;INHALATION
     Route: 055
     Dates: start: 20091014, end: 20100126
  2. LIPITOR (CON.) [Concomitant]
  3. SYNTHROID (CON.) [Concomitant]
  4. VITAMIN C (CON.) [Concomitant]
  5. FISH OIL (CON.) [Concomitant]
  6. VITAMIN D (CON.) [Concomitant]
  7. ROBITUSSIN DM (CON.) [Concomitant]
  8. LIPITOR (PREV.) [Concomitant]
  9. BENADRYL (PREV.) [Concomitant]

REACTIONS (1)
  - CEREBROVASCULAR ACCIDENT [None]
